FAERS Safety Report 7965477-3 (Version None)
Quarter: 2011Q4

REPORT INFORMATION
  Report Type: 
  Country: None (occurrence: None)
  Receive Date: 20111208
  Receipt Date: 20111129
  Transmission Date: 20120403
  Serious: Yes (Hospitalization)
  Sender: FDA-Public Use
  Company Number: JP-CEPHALON-2011006105

PATIENT
  Age: 90 Year
  Sex: Female

DRUGS (1)
  1. BENDAMUSTINE HCL [Suspect]
     Indication: MANTLE CELL LYMPHOMA
     Route: 042
     Dates: start: 20110824

REACTIONS (1)
  - CYTOMEGALOVIRUS INFECTION [None]
